FAERS Safety Report 25466060 (Version 1)
Quarter: 2025Q2

REPORT INFORMATION
  Report Type: Report from Study
  Country: CO (occurrence: CO)
  Receive Date: 20250623
  Receipt Date: 20250623
  Transmission Date: 20250716
  Serious: Yes (Hospitalization)
  Sender: JOHNSON AND JOHNSON
  Company Number: CO-JNJFOC-20250623545

PATIENT
  Age: 4 Decade
  Sex: Female
  Weight: 87 kg

DRUGS (1)
  1. SIMPONI [Suspect]
     Active Substance: GOLIMUMAB
     Indication: Rheumatoid arthritis
     Route: 058
     Dates: start: 2017

REACTIONS (3)
  - Hospitalisation [Unknown]
  - Viral infection [Unknown]
  - Off label use [Unknown]

NARRATIVE: CASE EVENT DATE: 20240101
